FAERS Safety Report 18480011 (Version 2)
Quarter: 2020Q4

REPORT INFORMATION
  Report Type: Spontaneous
  Country: US (occurrence: US)
  Receive Date: 20201109
  Receipt Date: 20201230
  Transmission Date: 20210114
  Serious: No
  Sender: FDA-Public Use
  Company Number: US-VERTEX PHARMACEUTICALS-2020-018868

PATIENT
  Age: 40 Year
  Sex: Female
  Weight: 64 kg

DRUGS (16)
  1. PRILOSEC [Concomitant]
     Active Substance: OMEPRAZOLE MAGNESIUM
     Dosage: 20 MG
     Route: 048
  2. NOVOLOG [Concomitant]
     Active Substance: INSULIN ASPART
  3. CALTRATE WITH VITAMIN D [Concomitant]
     Active Substance: CALCIUM CARBONATE\CHOLECALCIFEROL
     Dosage: 600 MG
     Route: 048
  4. TRESIBA [Concomitant]
     Active Substance: INSULIN DEGLUDEC
     Dosage: 7 UNITS DAILY
  5. CAYSTON [Concomitant]
     Active Substance: AZTREONAM
     Dosage: 75 MG 3 TIMES
  6. FLONASE [MOMETASONE FUROATE] [Concomitant]
     Active Substance: MOMETASONE FUROATE
     Dosage: 2 SPRAYS IN TO BOTH NOSTRILS ONCE DAILY
  7. TRIKAFTA [Suspect]
     Active Substance: ELEXACAFTOR\IVACAFTOR\TEZACAFTOR
     Indication: CYSTIC FIBROSIS
     Dosage: 2 TABS (100 MG ELEXACAFTOR/ 50 MG TEZACAFTOR/ 75 MG IVACAFTOR) AM AND 1 TAB (150MG IVACAFTOR) PM
     Route: 048
     Dates: start: 20191127
  8. NIZORAL [Concomitant]
     Active Substance: KETOCONAZOLE
     Dosage: UNK, QD
     Route: 061
  9. ZENPEP [Concomitant]
     Active Substance: PANCRELIPASE AMYLASE\PANCRELIPASE LIPASE\PANCRELIPASE PROTEASE
     Dosage: 2-3 TABS / MEAL
  10. ZITHROMAX [Concomitant]
     Active Substance: AZITHROMYCIN DIHYDRATE
     Dosage: 250 MG  EVERY MONDAY, WEDNESDAY AND FRIDAY
     Route: 048
  11. PULMOZYME [Concomitant]
     Active Substance: DORNASE ALFA
     Dosage: 1 MG/ML
  12. NEBUSAL [Concomitant]
     Active Substance: SODIUM CHLORIDE
     Dosage: 4 ML, BID
  13. INSULIN [Concomitant]
     Active Substance: INSULIN NOS
  14. ALBUTEROL [SALBUTAMOL] [Concomitant]
     Active Substance: ALBUTEROL
     Dosage: 2 INHALATIONS TWICE A DAY
  15. ZYRTEC [Concomitant]
     Active Substance: CETIRIZINE HYDROCHLORIDE
     Dosage: 10 MG ONCE DAILY
     Route: 048
  16. MIRENA [Concomitant]
     Active Substance: LEVONORGESTREL
     Dosage: INSERT 1 IN TO UTERUS

REACTIONS (6)
  - Abdominal distension [Recovered/Resolved]
  - Gluten sensitivity [Recovered/Resolved]
  - Dairy intolerance [Recovering/Resolving]
  - Bowel movement irregularity [Recovering/Resolving]
  - Urticaria [Recovered/Resolved]
  - Flatulence [Recovered/Resolved]

NARRATIVE: CASE EVENT DATE: 202008
